FAERS Safety Report 18694455 (Version 1)
Quarter: 2020Q4

REPORT INFORMATION
  Report Type: Spontaneous
  Country: US (occurrence: US)
  Receive Date: 20201231
  Receipt Date: 20201231
  Transmission Date: 20210114
  Serious: Yes (Hospitalization)
  Sender: FDA-Public Use
  Company Number: None

PATIENT
  Sex: Male

DRUGS (4)
  1. LEVETIRACETAM, PANTOPRAZOLE, NADOLOL, URSODIOL, VITAMIN D3, VIMPAT [Concomitant]
  2. ENTYVIO [Suspect]
     Active Substance: VEDOLIZUMAB
     Indication: CROHN^S DISEASE
     Dosage: ?          OTHER FREQUENCY:EVERY 4 WEEKS;?
     Route: 042
     Dates: start: 20200401
  3. CALCIUM [Concomitant]
     Active Substance: CALCIUM
  4. CIPRFLOXACIN, ONDANSETRON, ELIQUIS [Concomitant]

REACTIONS (2)
  - Illness [None]
  - Therapy interrupted [None]
